FAERS Safety Report 6487414-3 (Version None)
Quarter: 2009Q4

REPORT INFORMATION
  Report Type: 
  Country: None (occurrence: None)
  Receive Date: 20091209
  Receipt Date: 20091209
  Transmission Date: 20100525
  Serious: Yes (Hospitalization)
  Sender: FDA-Public Use
  Company Number: None

PATIENT
  Age: 59 Year
  Sex: Male
  Weight: 78.4723 kg

DRUGS (2)
  1. SUTENT [Suspect]
     Indication: OESOPHAGEAL CARCINOMA
     Dosage: 37.5MG PO QD : ORAL
     Route: 048
     Dates: start: 20091028, end: 20091201
  2. TAXOL [Concomitant]

REACTIONS (9)
  - BURNING SENSATION [None]
  - CULTURE POSITIVE [None]
  - FISTULA [None]
  - HERPES SIMPLEX [None]
  - IMPAIRED HEALING [None]
  - PRURITUS [None]
  - SKIN NECROSIS [None]
  - SKIN ULCER [None]
  - STAPHYLOCOCCAL INFECTION [None]
